FAERS Safety Report 5931291-3 (Version None)
Quarter: 2008Q4

REPORT INFORMATION
  Report Type: 
  Country: None (occurrence: None)
  Receive Date: 20081024
  Receipt Date: 20081024
  Transmission Date: 20090506
  Serious: Yes (Hospitalization)
  Sender: FDA-Public Use
  Company Number: None

PATIENT
  Sex: Male
  Weight: 82.6 kg

DRUGS (4)
  1. THALIDOMIDE [Suspect]
     Dosage: 5100 MG
  2. CELECOXIB [Suspect]
     Dosage: 13600 MG
  3. ACCUTANE [Suspect]
     Dosage: 2100 MG
  4. TEMOZOLOMIDE [Suspect]
     Dosage: 2100 MG

REACTIONS (5)
  - DEEP VEIN THROMBOSIS [None]
  - PNEUMONIA [None]
  - PRODUCTIVE COUGH [None]
  - PULMONARY EMBOLISM [None]
  - PULMONARY OEDEMA [None]
